FAERS Safety Report 11116827 (Version 2)
Quarter: 2015Q2

REPORT INFORMATION
  Report Type: Spontaneous
  Country: JP (occurrence: JP)
  Receive Date: 20150515
  Receipt Date: 20150605
  Transmission Date: 20150821
  Serious: Yes (Death, Hospitalization, Other)
  Sender: FDA-Public Use
  Company Number: JP-PFIZER INC-2015166382

PATIENT
  Age: 82 Year
  Sex: Male
  Weight: 52 kg

DRUGS (13)
  1. CASODEX [Concomitant]
     Active Substance: BICALUTAMIDE
     Dosage: UNK
     Dates: start: 20140715, end: 20141109
  2. MUCOSTA [Concomitant]
     Active Substance: REBAMIPIDE
     Dosage: UNK
     Dates: end: 20150222
  3. CARDENALIN [Concomitant]
     Active Substance: DOXAZOSIN MESYLATE
     Dosage: UNK
     Dates: start: 20150121, end: 20150222
  4. XTANDI [Suspect]
     Active Substance: ENZALUTAMIDE
     Indication: PROSTATE CANCER
     Dosage: 40 MG, 1X/DAY
     Route: 048
     Dates: start: 20141110, end: 20150124
  5. MAGMITT [Concomitant]
     Active Substance: MAGNESIUM OXIDE
     Dosage: UNK
     Dates: start: 20150127, end: 20150222
  6. TRAMAL [Concomitant]
     Active Substance: TRAMADOL
     Dosage: UNK
     Dates: start: 201501, end: 20150222
  7. CELECOX [Concomitant]
     Active Substance: CELECOXIB
     Dosage: 100 MG, UNK
     Dates: start: 20141029, end: 20150222
  8. XTANDI [Suspect]
     Active Substance: ENZALUTAMIDE
     Dosage: 40 MG, 1X/DAY
     Route: 048
     Dates: start: 20150126, end: 20150222
  9. LOXOPROFEN [Concomitant]
     Active Substance: LOXOPROFEN
     Dosage: UNK
     Dates: start: 20150216, end: 20150222
  10. PARIET [Concomitant]
     Active Substance: RABEPRAZOLE SODIUM
     Dosage: UNK
     Dates: start: 20150216, end: 20150222
  11. AIMIX [Concomitant]
     Active Substance: AMLODIPINE BESYLATE\IRBESARTAN
     Dosage: UNK
     Dates: end: 20150222
  12. BAYASPIRIN [Concomitant]
     Active Substance: ASPIRIN
     Dosage: UNK
     Dates: end: 20150222
  13. NIFEDIPINE. [Concomitant]
     Active Substance: NIFEDIPINE
     Dosage: UNK
     Dates: start: 20150108, end: 20150222

REACTIONS (6)
  - Abdominal pain [Fatal]
  - Abdominal pain [Recovering/Resolving]
  - Intentional product use issue [Unknown]
  - Prostate cancer [Fatal]
  - Blood pressure decreased [Recovered/Resolved]
  - Blood pressure increased [Recovered/Resolved]

NARRATIVE: CASE EVENT DATE: 20141110
